FAERS Safety Report 5107660-0 (Version None)
Quarter: 2006Q3

REPORT INFORMATION
  Report Type: 
  Country: None (occurrence: None)
  Receive Date: 20060731
  Receipt Date: 20060409
  Transmission Date: 20061208
  Serious: No
  Sender: FDA-Public Use
  Company Number: 2006PV011675

PATIENT
  Age: 60 Year
  Sex: Female

DRUGS (5)
  1. BYETTA [Suspect]
     Indication: DRUG USE FOR UNKNOWN INDICATION
     Dosage: 10 MCG;SC
     Route: 058
     Dates: start: 20060215
  2. LANTUS [Concomitant]
  3. ACTOS /USA/ [Concomitant]
  4. METFORMIN HCL [Concomitant]
  5. NOVOLOG [Concomitant]

REACTIONS (2)
  - ABDOMINAL PAIN UPPER [None]
  - WEIGHT INCREASED [None]
